FAERS Safety Report 8523663-8 (Version None)
Quarter: 2012Q3

REPORT INFORMATION
  Report Type: 
  Country: None (occurrence: None)
  Receive Date: 20120709
  Receipt Date: 20120625
  Transmission Date: 20120928
  Serious: Yes (Hospitalization)
  Sender: FDA-Public Use
  Company Number: 2012AP001433

PATIENT
  Age: 44 Year
  Sex: Male

DRUGS (7)
  1. CISPLATIN [Concomitant]
  2. ONDANSETRON [Concomitant]
  3. CITALOPRAM HYDROBROMIDE [Concomitant]
  4. DEXAMETHASONE SODIUM PHOSPHATE [Concomitant]
  5. QUETIAPINE FUMARATE [Suspect]
     Indication: ANXIETY
     Dosage: 50 MG; QD, 25 MG; QD
  6. QUETIAPINE FUMARATE [Suspect]
     Indication: OFF LABEL USE
     Dosage: 50 MG; QD, 25 MG; QD
  7. APREPITANT [Suspect]
     Indication: ANTIEMETIC SUPPORTIVE CARE
     Dosage: 125 MG;Q3W, 80 MG;Q3W

REACTIONS (6)
  - SOMNOLENCE [None]
  - RENAL IMPAIRMENT [None]
  - DEHYDRATION [None]
  - OFF LABEL USE [None]
  - DRUG INTERACTION [None]
  - ANTIPSYCHOTIC DRUG LEVEL INCREASED [None]
